FAERS Safety Report 6516513-2 (Version None)
Quarter: 2009Q4

REPORT INFORMATION
  Report Type: 
  Country: None (occurrence: None)
  Receive Date: 20091223
  Receipt Date: 20091215
  Transmission Date: 20100525
  Serious: Yes (Hospitalization, Other)
  Sender: FDA-Public Use
  Company Number: US-ELI_LILLY_AND_COMPANY-US200708000729

PATIENT
  Sex: Male
  Weight: 206 kg

DRUGS (6)
  1. BYETTA [Suspect]
     Indication: TYPE 2 DIABETES MELLITUS
     Dosage: 10 UG, 2/D
     Route: 058
     Dates: start: 20050101
  2. OXYCODONE [Concomitant]
     Indication: BACK PAIN
     Dosage: 15 MG, 2/D
     Route: 048
  3. FLECTOR                            /00372302/ [Concomitant]
     Indication: BACK PAIN
     Dosage: UNK, AS NEEDED
  4. TIZANIDINE HCL [Concomitant]
     Indication: BACK PAIN
     Dosage: 2 MG, 3/D
     Route: 048
  5. QUINAPRIL [Concomitant]
     Indication: HYPERTENSION
     Dosage: 40 MG, 2/D
     Route: 048
  6. OMEPRAZOLE [Concomitant]
     Indication: DYSPEPSIA
     Dosage: 20 MG, 2/D
     Route: 048

REACTIONS (10)
  - BLOOD PRESSURE DECREASED [None]
  - DEHYDRATION [None]
  - FATIGUE [None]
  - FOOD POISONING [None]
  - MUSCULAR WEAKNESS [None]
  - NAUSEA [None]
  - RENAL FAILURE ACUTE [None]
  - SEPSIS [None]
  - URINARY TRACT INFECTION [None]
  - VOMITING [None]
